FAERS Safety Report 19201125 (Version 2)
Quarter: 2021Q4

REPORT INFORMATION
  Report Type: Spontaneous
  Country: US (occurrence: US)
  Receive Date: 20210430
  Receipt Date: 20211018
  Transmission Date: 20220303
  Serious: No
  Sender: FDA-Public Use
  Company Number: US-PFIZER INC-2021171186

PATIENT
  Age: 78 Year
  Sex: Female
  Weight: 78.84 kg

DRUGS (1)
  1. IBRANCE [Suspect]
     Active Substance: PALBOCICLIB
     Indication: Neoplasm malignant
     Dosage: 100 MG, CYCLIC (ONE DAILY FOR 21 DAYS FOLLOWED BY 7 DAYS OFF)

REACTIONS (1)
  - Insomnia [Not Recovered/Not Resolved]
